FAERS Safety Report 17078503 (Version 1)
Quarter: 2019Q4

REPORT INFORMATION
  Report Type: Report from Study
  Country: None (occurrence: US)
  Receive Date: 20191126
  Receipt Date: 20191126
  Transmission Date: 20200122
  Serious: Yes (Other)
  Sender: FDA-Public Use
  Company Number: US-ABBVIE-19K-163-2972055-00

PATIENT
  Sex: Female
  Weight: 72.64 kg

DRUGS (3)
  1. HUMIRA [Suspect]
     Active Substance: ADALIMUMAB
     Route: 058
     Dates: start: 20191119
  2. HUMIRA [Suspect]
     Active Substance: ADALIMUMAB
     Indication: RHEUMATOID ARTHRITIS
     Route: 058
     Dates: start: 2003, end: 20191019
  3. CORTIZONE 10 [Concomitant]
     Active Substance: HYDROCORTISONE
     Indication: OSTEOARTHRITIS

REACTIONS (7)
  - Urinary tract infection [Recovered/Resolved]
  - Ligament sprain [Not Recovered/Not Resolved]
  - Fall [Not Recovered/Not Resolved]
  - Therapeutic response shortened [Recovering/Resolving]
  - Meniscus injury [Unknown]
  - Musculoskeletal stiffness [Recovering/Resolving]
  - Osteoarthritis [Not Recovered/Not Resolved]

NARRATIVE: CASE EVENT DATE: 2013
